FAERS Safety Report 5224556-4 (Version None)
Quarter: 2007Q1

REPORT INFORMATION
  Report Type: 
  Country: None (occurrence: None)
  Receive Date: 20070126
  Receipt Date: 20070111
  Transmission Date: 20070707
  Serious: Yes (Life-Threatening, Other)
  Sender: FDA-Public Use
  Company Number: VER_0037_2007

PATIENT
  Age: 47 Year
  Sex: Male
  Weight: 97.5234 kg

DRUGS (2)
  1. EPINEPHRINE [Suspect]
     Indication: ALLERGY TO ARTHROPOD STING
     Dosage: 0.3 MG PRN SC
     Route: 058
     Dates: start: 20060101, end: 20060101
  2. NEXIUM [Concomitant]

REACTIONS (4)
  - DEVICE FAILURE [None]
  - DIZZINESS [None]
  - DYSPNOEA [None]
  - PHARMACEUTICAL PRODUCT COMPLAINT [None]
